FAERS Safety Report 5780004-7 (Version None)
Quarter: 2008Q2

REPORT INFORMATION
  Report Type: 
  Country: None (occurrence: None)
  Receive Date: 20080620
  Receipt Date: 20080612
  Transmission Date: 20081010
  Serious: Yes (Other)
  Sender: FDA-Public Use
  Company Number: US-TYCO HEALTHCARE/MALLINCKRODT-T200701519

PATIENT

DRUGS (17)
  1. OPTIMARK [Suspect]
     Indication: NUCLEAR MAGNETIC RESONANCE IMAGING
     Dosage: 20 ML, SINGLE
     Route: 042
     Dates: start: 20070124, end: 20070124
  2. MAGNEVIST [Suspect]
     Indication: NUCLEAR MAGNETIC RESONANCE IMAGING
     Dates: start: 20040830, end: 20040830
  3. MAGNEVIST [Suspect]
     Indication: ANGIOGRAM
     Dates: start: 20050630, end: 20050630
  4. MAGNEVIST [Suspect]
     Dates: start: 20061026, end: 20061026
  5. MAGNEVIST [Suspect]
     Dates: start: 20061107, end: 20061107
  6. MAGNEVIST [Suspect]
     Dates: start: 20070316, end: 20070316
  7. ALOPURINOL                         /00003301/ [Concomitant]
     Dosage: 50 MG, QD
  8. ASPIRIN [Concomitant]
     Dosage: UNK, UNK
  9. FUROSEMIDE [Concomitant]
     Dosage: UNK, UNK
  10. CLONIDINE [Concomitant]
     Dosage: .3 MG, AFTERNOON AND BEDTIME
  11. COREG [Concomitant]
     Dosage: 25 MG, BID, SUPPER
  12. HYDRALAZINE HCL [Concomitant]
     Dosage: 50 MG, 3 A DAY-AFTERNOON AND BEDTIME
  13. ZOLOFT [Concomitant]
     Dosage: 50 MG, QD
  14. RENAGEL                            /01459901/ [Concomitant]
     Dosage: 800 MG, 3 EA WITH MEALS, 2 EA WITH SNACKS
  15. LIPITOR [Concomitant]
     Dosage: 10 MG, QD AT BEDTIME
  16. VITAMIN B12                        /00056201/ [Concomitant]
     Dosage: UNK, QD
  17. INSULIN [Concomitant]
     Dosage: 30 UNITS AT 8 AM AND 26 UNITS AT ABOUT 6-7 PM

REACTIONS (1)
  - NEPHROGENIC SYSTEMIC FIBROSIS [None]
